FAERS Safety Report 11071586 (Version 2)
Quarter: 2015Q2

REPORT INFORMATION
  Report Type: Spontaneous
  Country: US (occurrence: US)
  Receive Date: 20150428
  Receipt Date: 20150610
  Transmission Date: 20150821
  Serious: No
  Sender: FDA-Public Use
  Company Number: US-009507513-1504USA021283

PATIENT
  Sex: Female

DRUGS (1)
  1. ASMANEX [Suspect]
     Active Substance: MOMETASONE FUROATE
     Dosage: 220 MICROGRAM INHALER, 2 PUFFS ONCE DAILY
     Route: 048
     Dates: start: 201408

REACTIONS (3)
  - Drug dose omission [Unknown]
  - Product container issue [Unknown]
  - No adverse event [Unknown]
